FAERS Safety Report 14588890 (Version 1)
Quarter: 2018Q1

REPORT INFORMATION
  Report Type: Spontaneous
  Country: BE (occurrence: BE)
  Receive Date: 20180301
  Receipt Date: 20180301
  Transmission Date: 20180509
  Serious: Yes (Hospitalization)
  Sender: FDA-Public Use
  Company Number: BE-BAUSCH-BL-2018-005342

PATIENT
  Age: 67 Year
  Sex: Female

DRUGS (14)
  1. IRINOTECAN [Suspect]
     Active Substance: IRINOTECAN
     Indication: COLORECTAL CANCER METASTATIC
     Dosage: DOSE OF 1  (UNITS UNSPECIFIED), EVERY OTHER WEEK
     Route: 042
     Dates: start: 20170221
  2. IRINOTECAN [Suspect]
     Active Substance: IRINOTECAN
     Indication: OFF LABEL USE
  3. IMODIUM [Concomitant]
     Active Substance: LOPERAMIDE HYDROCHLORIDE
     Indication: PROPHYLAXIS
     Dates: start: 201004, end: 20170830
  4. ALPRAZOLAM. [Concomitant]
     Active Substance: ALPRAZOLAM
     Indication: PROPHYLAXIS
     Dates: start: 1998, end: 20170830
  5. OXYCONTIN [Concomitant]
     Active Substance: OXYCODONE HYDROCHLORIDE
     Indication: PROPHYLAXIS
     Dates: start: 20170830
  6. AVASTIN [Suspect]
     Active Substance: BEVACIZUMAB
     Indication: COLORECTAL CANCER METASTATIC
     Dosage: DOSE OF 1 (UNITS UNSPECIFIED), EVERY OTHER WEEK
     Route: 042
     Dates: start: 20170221
  7. PANTOMED (PANTOPRAZOLE SODIUM SESQUIHYDRATE) [Concomitant]
     Active Substance: PANTOPRAZOLE SODIUM
     Indication: PROPHYLAXIS
     Dates: start: 20170830
  8. XANAX [Concomitant]
     Active Substance: ALPRAZOLAM
     Indication: PROPHYLAXIS
     Dates: end: 20170830
  9. FLUOROURACIL. [Suspect]
     Active Substance: FLUOROURACIL
     Indication: COLORECTAL CANCER METASTATIC
     Dosage: DOSE OF 1 (UNITS UNSPECIFIED), EVERY OTHER WEEK
     Route: 042
     Dates: start: 20170221
  10. LEUCOVORIN. [Suspect]
     Active Substance: LEUCOVORIN
     Indication: COLORECTAL CANCER METASTATIC
     Dosage: DOSE OF 1 (UNITS UNSPECIFIED), EVERY OTHER WEEK
     Route: 042
     Dates: start: 20170221
  11. TRAZODONE [Concomitant]
     Active Substance: TRAZODONE HYDROCHLORIDE
     Indication: PROPHYLAXIS
     Dates: start: 20170830
  12. FOLINIC ACID [Suspect]
     Active Substance: LEUCOVORIN
     Indication: PROPHYLAXIS
     Route: 065
  13. FOLINIC ACID [Suspect]
     Active Substance: LEUCOVORIN
     Indication: PRODUCT USED FOR UNKNOWN INDICATION
  14. ZALDIAR [Concomitant]
     Active Substance: ACETAMINOPHEN\TRAMADOL HYDROCHLORIDE
     Indication: PROPHYLAXIS
     Dates: end: 20170530

REACTIONS (4)
  - Syncope [Not Recovered/Not Resolved]
  - Musculoskeletal pain [Not Recovered/Not Resolved]
  - Pyrexia [Recovered/Resolved]
  - Off label use [Unknown]

NARRATIVE: CASE EVENT DATE: 20170830
